FAERS Safety Report 18712084 (Version 1)
Quarter: 2021Q1

REPORT INFORMATION
  Report Type: Spontaneous
  Country: US (occurrence: US)
  Receive Date: 20210107
  Receipt Date: 20210107
  Transmission Date: 20210419
  Serious: Yes (Hospitalization, Disabling, Other)
  Sender: FDA-Public Use
  Company Number: US-009507513-2101USA001165

PATIENT
  Sex: Female

DRUGS (6)
  1. FOSAMAX [Suspect]
     Active Substance: ALENDRONATE SODIUM
     Indication: OSTEOPOROSIS
     Dosage: UNK
  2. FOSAMAX [Suspect]
     Active Substance: ALENDRONATE SODIUM
     Indication: OSTEOPENIA
     Dosage: ?AS PRESCRIBED AND IN A FORESEEABLE MANNER?
     Route: 065
     Dates: start: 200207, end: 201106
  3. FOSAMAX [Suspect]
     Active Substance: ALENDRONATE SODIUM
     Indication: OSTEOPOROSIS
     Dosage: ?AS PRESCRIBED AND IN A FORESEEABLE MANNER?
     Dates: start: 200207, end: 201106
  4. BONIVA [Suspect]
     Active Substance: IBANDRONATE SODIUM
     Indication: OSTEOPENIA
     Dosage: UNK
  5. FOSAMAX [Suspect]
     Active Substance: ALENDRONATE SODIUM
     Indication: OSTEOPENIA
     Dosage: 70 MILLIGRAM, QW
     Route: 065
     Dates: start: 20020702, end: 20100614
  6. BONIVA [Suspect]
     Active Substance: IBANDRONATE SODIUM
     Indication: OSTEOPOROSIS
     Dosage: ?AS PRESCRIBED AND IN A FORESEEABLE MANNER?; 150 MILLIGRAM
     Route: 065
     Dates: start: 20100614, end: 20110630

REACTIONS (6)
  - Femur fracture [Unknown]
  - Bone disorder [Unknown]
  - Incorrect product administration duration [Unknown]
  - Low turnover osteopathy [Unknown]
  - Emotional distress [Unknown]
  - Stress fracture [Unknown]

NARRATIVE: CASE EVENT DATE: 200207
